FAERS Safety Report 6059124-8 (Version None)
Quarter: 2009Q1

REPORT INFORMATION
  Report Type: 
  Country: None (occurrence: None)
  Receive Date: 20090130
  Receipt Date: 20090123
  Transmission Date: 20090719
  Serious: Yes (Other)
  Sender: FDA-Public Use
  Company Number: JP-JNJFOC-20090106295

PATIENT

DRUGS (2)
  1. RISPERDAL [Suspect]
     Indication: DELUSION
     Route: 048
  2. VALPROATE SODIUM [Concomitant]
     Indication: DELUSION
     Route: 048

REACTIONS (3)
  - COGNITIVE DISORDER [None]
  - DELUSION [None]
  - TREMOR [None]
